FAERS Safety Report 9949600 (Version 1)
Quarter: 2014Q1

REPORT INFORMATION
  Report Type: Report from Study
  Country: US (occurrence: US)
  Receive Date: 20140304
  Receipt Date: 20140304
  Transmission Date: 20141002
  Serious: No
  Sender: FDA-Public Use
  Company Number: US-ABBVIE-13P-163-1069008-00

PATIENT
  Age: 54 Year
  Sex: Male
  Weight: 78.54 kg

DRUGS (11)
  1. HUMIRA [Suspect]
     Indication: CROHN^S DISEASE
     Dates: start: 201203, end: 201203
  2. HUMIRA [Suspect]
     Dates: start: 201203, end: 201203
  3. HUMIRA [Suspect]
     Dosage: ON HOLD
     Dates: start: 201204
  4. HUMIRA [Suspect]
     Dates: start: 201302
  5. PENTASA [Concomitant]
     Indication: CROHN^S DISEASE
  6. PURINETHOL [Concomitant]
     Indication: CROHN^S DISEASE
  7. FOLIC ACID [Concomitant]
     Indication: VITAMIN SUPPLEMENTATION
  8. ATENOLOL [Concomitant]
     Indication: HYPERTENSION
  9. ALLOPURINOL [Concomitant]
     Indication: PRODUCT USED FOR UNKNOWN INDICATION
  10. OMEPRAZOLE [Concomitant]
     Indication: PRODUCT USED FOR UNKNOWN INDICATION
  11. CANASA [Concomitant]
     Indication: PRODUCT USED FOR UNKNOWN INDICATION

REACTIONS (8)
  - Choking sensation [Recovered/Resolved]
  - Fungal infection [Recovered/Resolved]
  - Skin exfoliation [Not Recovered/Not Resolved]
  - Crohn^s disease [Not Recovered/Not Resolved]
  - Candida infection [Recovered/Resolved]
  - Dry skin [Not Recovered/Not Resolved]
  - Pain of skin [Not Recovered/Not Resolved]
  - Influenza [Recovered/Resolved]
